FAERS Safety Report 4840970-0 (Version None)
Quarter: 2005Q4

REPORT INFORMATION
  Report Type: 
  Country: None (occurrence: None)
  Receive Date: 20051130
  Receipt Date: 20050810
  Transmission Date: 20060501
  Serious: No
  Sender: FDA-Public Use
  Company Number: US-BRISTOL-MYERS SQUIBB COMPANY-13071782

PATIENT
  Sex: Male
  Weight: 113 kg

DRUGS (6)
  1. ABILIFY [Suspect]
     Indication: BIPOLAR DISORDER
     Route: 048
     Dates: start: 20050701
  2. ABILIFY [Suspect]
     Indication: IMPULSIVE BEHAVIOUR
     Route: 048
     Dates: start: 20050701
  3. AZULFIDINE [Concomitant]
  4. ALLOPURINOL [Concomitant]
  5. CHONDROITIN [Concomitant]
  6. GLUCOSAMINE [Concomitant]

REACTIONS (2)
  - ERECTILE DYSFUNCTION [None]
  - SOMNOLENCE [None]
